FAERS Safety Report 5965140-4 (Version None)
Quarter: 2008Q4

REPORT INFORMATION
  Report Type: 
  Country: None (occurrence: None)
  Receive Date: 20081125
  Receipt Date: 20081114
  Transmission Date: 20090506
  Serious: Yes (Other)
  Sender: FDA-Public Use
  Company Number: AU-AMGEN-US319566

PATIENT

DRUGS (2)
  1. ENBREL [Suspect]
     Indication: DRUG USE FOR UNKNOWN INDICATION
     Dosage: LYOPHILIZED (DOSE AND FREQUENCY UNKNOWN)
     Route: 065
  2. METHOTREXATE [Concomitant]
     Dosage: UNKNOWN

REACTIONS (1)
  - LIVER DISORDER [None]
